FAERS Safety Report 8784449 (Version 2)
Quarter: 2012Q4

REPORT INFORMATION
  Report Type: Spontaneous
  Country: US (occurrence: None)
  Receive Date: 20120830
  Receipt Date: 20120913
  Transmission Date: 20130627
  Serious: Yes (Hospitalization)
  Sender: FDA-Public Use
  Company Number: 2012AP002749

PATIENT
  Age: 83 Year
  Sex: Female

DRUGS (3)
  1. VERAPAMIL HYDROCHLORIDE [Suspect]
     Indication: HYPERTENSION
  2. KETOCONAZOLE [Suspect]
     Route: 048
  3. KETOCONAZOLE [Suspect]
     Dosage: Q6H
     Route: 048

REACTIONS (10)
  - Cushing^s syndrome [None]
  - Mental status changes [None]
  - Atrioventricular block complete [None]
  - Hypokalaemia [None]
  - Drug interaction [None]
  - Alkalosis hypochloraemic [None]
  - Bradycardia [None]
  - Hypotension [None]
  - Nodal rhythm [None]
  - No therapeutic response [None]
